FAERS Safety Report 6096578-5 (Version None)
Quarter: 2009Q1

REPORT INFORMATION
  Report Type: 
  Country: None (occurrence: None)
  Receive Date: 20090225
  Receipt Date: 20090225
  Transmission Date: 20090719
  Serious: Yes (Life-Threatening)
  Sender: FDA-Public Use
  Company Number: None

PATIENT
  Sex: Male
  Weight: 148 kg

DRUGS (1)
  1. LISINOPRIL [Suspect]
     Indication: BLOOD PRESSURE
     Dosage: 1/2 PILL = 10/12.5 DAILY LOWEST DOSE

REACTIONS (3)
  - CHOKING [None]
  - ENLARGED UVULA [None]
  - RETCHING [None]
